FAERS Safety Report 22218915 (Version 2)
Quarter: 2023Q2

REPORT INFORMATION
  Report Type: Spontaneous
  Country: US (occurrence: US)
  Receive Date: 20230417
  Receipt Date: 20230626
  Transmission Date: 20230722
  Serious: No
  Sender: FDA-Public Use
  Company Number: US-PFIZER INC-202300146245

PATIENT
  Age: 15 Year
  Sex: Male
  Weight: 58.97 kg

DRUGS (4)
  1. GENOTROPIN [Suspect]
     Active Substance: SOMATROPIN
     Indication: Hypothalamo-pituitary disorder
     Dosage: 4.4 MG (BY INJECTION 6 TIMES A WEEK)
     Dates: start: 201910
  2. GENOTROPIN [Suspect]
     Active Substance: SOMATROPIN
     Indication: Growth disorder
  3. GENOTROPIN [Suspect]
     Active Substance: SOMATROPIN
     Indication: Blood growth hormone
  4. LETROZOLE [Concomitant]
     Active Substance: LETROZOLE
     Indication: Blood oestrogen abnormal
     Dosage: 2.5 MG, 1X/DAY (1 2.5MG TABLET EVERY DAY)

REACTIONS (4)
  - Device difficult to use [Unknown]
  - Wrong technique in device usage process [Unknown]
  - Poor quality device used [Unknown]
  - Needle issue [Unknown]
